FAERS Safety Report 23668688 (Version 1)
Quarter: 2024Q1

REPORT INFORMATION
  Report Type: Spontaneous
  Country: US (occurrence: None)
  Receive Date: 20240322
  Receipt Date: 20240322
  Transmission Date: 20240410
  Serious: Yes (unspecified)
  Sender: FDA-Public Use
  Company Number: None

PATIENT
  Age: 68 Year
  Sex: Female
  Weight: 65.77 kg

DRUGS (15)
  1. PROLIA [Suspect]
     Active Substance: DENOSUMAB
  2. CALCIUM [Concomitant]
     Active Substance: CALCIUM
  3. ZINC [Concomitant]
     Active Substance: PYRITHIONE ZINC\ZINC\ZINC CHLORIDE
  4. SELENIUM [Concomitant]
     Active Substance: SELENIUM
  5. BIOTIN [Concomitant]
     Active Substance: BIOTIN
  6. PROBIOTICS NOS [Concomitant]
     Active Substance: PROBIOTICS NOS
  7. VITAMIN D3 [Concomitant]
     Active Substance: CHOLECALCIFEROL
  8. MAGNESIUM [Concomitant]
     Active Substance: MAGNESIUM
  9. GLUCOSAMINE SULFATE [Concomitant]
     Active Substance: GLUCOSAMINE SULFATE
  10. POTASSIUM CHLORIDE [Concomitant]
     Active Substance: POTASSIUM CHLORIDE
  11. GINGER [Concomitant]
     Active Substance: GINGER
  12. HERBALS\TURMERIC [Concomitant]
     Active Substance: HERBALS\TURMERIC
  13. VITAMIN B12 [Concomitant]
     Active Substance: CYANOCOBALAMIN
  14. C [Concomitant]
  15. TOTAL BEET [Concomitant]

REACTIONS (7)
  - Muscle spasms [None]
  - Pain [None]
  - Arthralgia [None]
  - Pain in extremity [None]
  - Arthralgia [None]
  - Foot fracture [None]
  - Arthritis [None]

NARRATIVE: CASE EVENT DATE: 20230713
